FAERS Safety Report 11928661 (Version 2)
Quarter: 2016Q1

REPORT INFORMATION
  Report Type: Spontaneous
  Country: PL (occurrence: PL)
  Receive Date: 20160119
  Receipt Date: 20160127
  Transmission Date: 20160526
  Serious: Yes (Disabling, Other)
  Sender: FDA-Public Use
  Company Number: PHHY2016PL003120

PATIENT
  Age: 46 Year
  Sex: Female

DRUGS (12)
  1. CYCLOPHOSPHAMIDE. [Suspect]
     Active Substance: CYCLOPHOSPHAMIDE
     Indication: GASTRIC NEOPLASM
  2. TAMOXIFEN [Suspect]
     Active Substance: TAMOXIFEN
     Indication: BREAST NEOPLASM
     Route: 065
     Dates: start: 2011, end: 201406
  3. DOXORUBICIN [Suspect]
     Active Substance: DOXORUBICIN
     Indication: BREAST NEOPLASM
     Route: 065
     Dates: start: 2011, end: 201406
  4. LETROZOLE. [Suspect]
     Active Substance: LETROZOLE
     Indication: GASTRIC NEOPLASM
  5. DOCETAXEL. [Suspect]
     Active Substance: DOCETAXEL
     Indication: BREAST NEOPLASM
     Route: 065
     Dates: start: 2011, end: 201406
  6. METHOTREXATE [Suspect]
     Active Substance: METHOTREXATE
     Indication: BREAST NEOPLASM
     Route: 037
     Dates: start: 201406
  7. DOXORUBICIN [Suspect]
     Active Substance: DOXORUBICIN
     Indication: GASTRIC NEOPLASM
  8. CYCLOPHOSPHAMIDE. [Suspect]
     Active Substance: CYCLOPHOSPHAMIDE
     Indication: BREAST NEOPLASM
     Route: 065
     Dates: start: 2011, end: 201406
  9. TAMOXIFEN [Suspect]
     Active Substance: TAMOXIFEN
     Indication: GASTRIC NEOPLASM
  10. DOCETAXEL. [Suspect]
     Active Substance: DOCETAXEL
     Indication: GASTRIC NEOPLASM
  11. METHOTREXATE [Suspect]
     Active Substance: METHOTREXATE
     Indication: GASTRIC NEOPLASM
  12. LETROZOLE. [Suspect]
     Active Substance: LETROZOLE
     Indication: BREAST NEOPLASM
     Route: 065
     Dates: start: 2011, end: 201406

REACTIONS (7)
  - Headache [Unknown]
  - Blindness [Not Recovered/Not Resolved]
  - Visual impairment [Unknown]
  - Disease progression [Unknown]
  - Dizziness [Unknown]
  - Drug ineffective [Unknown]
  - Metastases to bone [Unknown]

NARRATIVE: CASE EVENT DATE: 2011
